FAERS Safety Report 9880671 (Version 2)
Quarter: 2014Q1

REPORT INFORMATION
  Report Type: Spontaneous
  Country: IT (occurrence: None)
  Receive Date: 20140205
  Receipt Date: 20140221
  Transmission Date: 20141002
  Serious: Yes (Other)
  Sender: FDA-Public Use
  Company Number: AUR-APL-2014-01214

PATIENT
  Age: 71 Year
  Sex: Female

DRUGS (5)
  1. LISINOPRIL [Suspect]
     Indication: HYPERTENSION
     Dosage: (5 MG, 1 D), ORAL
     Route: 048
     Dates: start: 20110101, end: 20140123
  2. ACENOCOUMAROL [Suspect]
     Indication: THROMBOSIS PROPHYLAXIS
     Dosage: (2 MG, 1 D), ORAL
     Route: 048
     Dates: start: 20110101, end: 20140120
  3. ADALAT [Suspect]
     Indication: HYPERTENSION
     Dosage: (10 MG, 1 D), ORAL
     Route: 048
     Dates: start: 20110101, end: 20140123
  4. SPIRONOLACTONE [Suspect]
     Indication: HYPERTENSION
     Dosage: (25 MG, 1 D), ORAL
     Route: 048
     Dates: start: 20110101, end: 20140123
  5. ISOSORBIDE MONONITRATE (ISOSORBIDE MONONITRATE) [Concomitant]

REACTIONS (7)
  - Hypertension [None]
  - Cough [None]
  - Haemoptysis [None]
  - Cerebral haemorrhage [None]
  - Refusal of treatment by patient [None]
  - Haemorrhagic stroke [None]
  - International normalised ratio increased [None]
